FAERS Safety Report 4603020-7 (Version None)
Quarter: 2005Q1

REPORT INFORMATION
  Report Type: 
  Country: None (occurrence: None)
  Receive Date: 20050309
  Receipt Date: 20050228
  Transmission Date: 20050727
  Serious: Yes (Hospitalization)
  Sender: FDA-Public Use
  Company Number: PHFR2005GB01052

PATIENT
  Age: 45 Year
  Sex: Male

DRUGS (1)
  1. CLOZARIL [Suspect]
     Indication: SCHIZOPHRENIA
     Dates: start: 20050131, end: 20050217

REACTIONS (7)
  - ATRIAL FLUTTER [None]
  - BLOOD PRESSURE FLUCTUATION [None]
  - C-REACTIVE PROTEIN INCREASED [None]
  - INCONTINENCE [None]
  - PYREXIA [None]
  - SOMNOLENCE [None]
  - TACHYCARDIA [None]
